FAERS Safety Report 5247326-X (Version None)
Quarter: 2007Q1

REPORT INFORMATION
  Report Type: 
  Country: None (occurrence: None)
  Receive Date: 20070223
  Receipt Date: 20070223
  Transmission Date: 20070707
  Serious: Yes (Hospitalization)
  Sender: FDA-Public Use
  Company Number: None

PATIENT
  Sex: Female
  Weight: 86.36 kg

DRUGS (11)
  1. UNASYN [Suspect]
     Indication: OSTEOMYELITIS CHRONIC
     Dosage: 3 GRAMS  Q 8 HRS  IV
     Route: 042
     Dates: start: 20070210, end: 20070211
  2. AMPICILLIN AND SULBACTAM [Suspect]
     Indication: OSTEOMYELITIS CHRONIC
     Dosage: 3 GRAMS  Q 8 HRS IV
     Route: 042
     Dates: start: 20070212, end: 20070213
  3. METHADONE HCL [Concomitant]
  4. PERCOCET [Concomitant]
  5. PHENERGAN HCL [Concomitant]
  6. MIRALAX [Concomitant]
  7. LYRICA [Concomitant]
  8. CYMBALTA [Concomitant]
  9. CIPRO [Concomitant]
  10. SALINE [Concomitant]
  11. HEPARIN [Concomitant]

REACTIONS (2)
  - CONVULSION [None]
  - INFUSION RELATED REACTION [None]
